FAERS Safety Report 7524512-7 (Version None)
Quarter: 2011Q2

REPORT INFORMATION
  Report Type: 
  Country: None (occurrence: None)
  Receive Date: 20110606
  Receipt Date: 20110517
  Transmission Date: 20111010
  Serious: Yes (Hospitalization, Other)
  Sender: FDA-Public Use
  Company Number: US-BAYER-201041449NA

PATIENT
  Age: 29 Year
  Sex: Female
  Weight: 147.39 kg

DRUGS (10)
  1. YASMIN [Suspect]
     Indication: ACNE
     Dosage: UNK UNK, QD
     Dates: start: 20070901, end: 20071120
  2. NYQUIL [Concomitant]
     Dosage: UNK UNK, PRN
     Route: 048
  3. YAZ [Suspect]
     Indication: MIGRAINE
  4. TYLENOL PM [Concomitant]
     Dosage: UNK UNK, PRN
     Route: 048
  5. YASMIN [Suspect]
     Indication: MIGRAINE
  6. YASMIN [Suspect]
     Indication: CONTRACEPTION
  7. PRILOSEC [Concomitant]
     Route: 048
  8. IBUPROFEN [Concomitant]
     Dosage: UNK UNK, PRN
     Route: 048
  9. YAZ [Suspect]
     Indication: CONTRACEPTION
  10. YAZ [Suspect]
     Indication: ACNE
     Dosage: UNK UNK, QD
     Dates: start: 20070901, end: 20071120

REACTIONS (6)
  - HAEMOLYTIC URAEMIC SYNDROME [None]
  - VISUAL ACUITY REDUCED [None]
  - THROMBOSIS [None]
  - BLINDNESS UNILATERAL [None]
  - HAEMORRHAGE [None]
  - PAPILLOEDEMA [None]
